FAERS Safety Report 6716964-7 (Version None)
Quarter: 2010Q2

REPORT INFORMATION
  Report Type: 
  Country: None (occurrence: None)
  Receive Date: 20100510
  Receipt Date: 20100429
  Transmission Date: 20101027
  Serious: Yes (Hospitalization)
  Sender: FDA-Public Use
  Company Number: FR-JNJFOC-20100407814

PATIENT
  Sex: Female

DRUGS (5)
  1. REMINYL LP [Suspect]
     Indication: DEMENTIA ALZHEIMER'S TYPE
     Route: 048
  2. REMINYL LP [Suspect]
     Route: 048
  3. REMINYL LP [Suspect]
     Route: 048
  4. CHONDROSULF [Concomitant]
     Indication: DRUG USE FOR UNKNOWN INDICATION
     Dosage: 800 MG IN THE MORNING
     Route: 065
  5. FORLAX [Concomitant]
     Indication: DRUG USE FOR UNKNOWN INDICATION
     Route: 065

REACTIONS (5)
  - BRADYCARDIA [None]
  - DRUG PRESCRIBING ERROR [None]
  - NAUSEA [None]
  - OVERDOSE [None]
  - VOMITING [None]
